FAERS Safety Report 15940134 (Version 1)
Quarter: 2019Q1

REPORT INFORMATION
  Report Type: Report from Study
  Country: US (occurrence: US)
  Receive Date: 20190208
  Receipt Date: 20190208
  Transmission Date: 20190417
  Serious: Yes (Other)
  Sender: FDA-Public Use
  Company Number: US-GILEAD-2019-0389454

PATIENT
  Age: 40 Year
  Sex: Male

DRUGS (2)
  1. COLISTIN [Suspect]
     Active Substance: COLISTIN
     Indication: CYSTIC FIBROSIS
     Dosage: UNK
     Route: 065
  2. AZTREONAM LYSINE [Suspect]
     Active Substance: AZTREONAM LYSINE
     Indication: CYSTIC FIBROSIS
     Dosage: 75MG INHALED SOLUTION 3 TIMES DAILY. 28 DAYS ON AND 28 DAYS OFF
     Route: 055
     Dates: start: 201612

REACTIONS (2)
  - Cystic fibrosis [Recovering/Resolving]
  - Intentional product use issue [Unknown]
